FAERS Safety Report 20916589 (Version 1)
Quarter: 2022Q2

REPORT INFORMATION
  Report Type: Spontaneous
  Country: US (occurrence: US)
  Receive Date: 20220605
  Receipt Date: 20220605
  Transmission Date: 20220721
  Serious: No
  Sender: FDA-Public Use
  Company Number: US-drreddys-SPO/USA/22/0150449

PATIENT
  Age: 36 Year
  Sex: Female

DRUGS (2)
  1. ACCUTANE [Suspect]
     Active Substance: ISOTRETINOIN
     Indication: Product used for unknown indication
     Dosage: RMA ISSUE DATE: 20 DECEMBER 2021 02:48:31 PM; 20 JANUARY 2022 12:17:52 PM; 17 FEBRUARY 2022 11:25:52
  2. ACCUTANE [Suspect]
     Active Substance: ISOTRETINOIN
     Dosage: RMA ISSUE DATE: 20 JANUARY 2022 12:17:52 PM

REACTIONS (1)
  - Treatment noncompliance [Unknown]
